FAERS Safety Report 9205408 (Version 4)
Quarter: 2013Q4

REPORT INFORMATION
  Report Type: Spontaneous
  Country: US (occurrence: US)
  Receive Date: 20130402
  Receipt Date: 20131112
  Transmission Date: 20140711
  Serious: Yes (Hospitalization, Other)
  Sender: FDA-Public Use
  Company Number: 2013SP003233

PATIENT
  Age: 79 Year
  Sex: Female

DRUGS (5)
  1. ESZOPICLONE [Suspect]
     Indication: PRODUCT USED FOR UNKNOWN INDICATION
     Route: 048
  2. MIRTAZAPINE [Suspect]
     Indication: PRODUCT USED FOR UNKNOWN INDICATION
  3. MIRTAZAPINE [Suspect]
     Indication: PRODUCT USED FOR UNKNOWN INDICATION
  4. DONEPEZIL [Suspect]
     Indication: PRODUCT USED FOR UNKNOWN INDICATION
  5. DONEPEZIL [Suspect]
     Indication: PRODUCT USED FOR UNKNOWN INDICATION

REACTIONS (5)
  - Encephalopathy [Recovered/Resolved]
  - Acute psychosis [Recovered/Resolved]
  - Delusion [Recovered/Resolved]
  - Incoherent [Recovered/Resolved]
  - Confusional state [Recovered/Resolved]
